FAERS Safety Report 5861196-8 (Version None)
Quarter: 2008Q3

REPORT INFORMATION
  Report Type: 
  Country: None (occurrence: None)
  Receive Date: 20080827
  Receipt Date: 20080315
  Transmission Date: 20090109
  Serious: No
  Sender: FDA-Public Use
  Company Number: US-ABBOTT-08P-163-0443343-00

PATIENT
  Age: 78 Year
  Sex: Male

DRUGS (4)
  1. COATED PDS [Suspect]
     Indication: HIGH DENSITY LIPOPROTEIN DECREASED
     Dosage: CUT PILL IN HALF
     Route: 048
     Dates: start: 20070901
  2. COATED PDS [Suspect]
     Indication: LOW DENSITY LIPOPROTEIN INCREASED
  3. VALSARTAN [Concomitant]
     Indication: HYPERTENSION
     Route: 048
  4. INEGY [Concomitant]
     Indication: LOW DENSITY LIPOPROTEIN INCREASED
     Route: 048

REACTIONS (1)
  - FLUSHING [None]
